FAERS Safety Report 6345380-5 (Version None)
Quarter: 2009Q3

REPORT INFORMATION
  Report Type: 
  Country: None (occurrence: None)
  Receive Date: 20090909
  Receipt Date: 20090825
  Transmission Date: 20100115
  Serious: Yes (Other)
  Sender: FDA-Public Use
  Company Number: JP-ASTRAZENECA-2007AP04239

PATIENT
  Age: 61 Year
  Sex: Male
  Weight: 59 kg

DRUGS (27)
  1. MEROPENEM [Suspect]
     Indication: SEPSIS
     Route: 042
     Dates: start: 20070502, end: 20070507
  2. AMBISOME [Suspect]
     Indication: SYSTEMIC MYCOSIS
     Dosage: 3 VIALS/DAY (2.5MG/KG) 150MG
     Route: 042
     Dates: start: 20070507, end: 20070511
  3. AMBISOME [Suspect]
     Dosage: 1 VIAL/DAY 50MG
     Route: 042
     Dates: start: 20070512, end: 20070514
  4. AMBISOME [Suspect]
     Dosage: 3 VIALS/DAY
     Route: 042
     Dates: start: 20070516
  5. ITRIZOLE [Suspect]
     Indication: SYSTEMIC MYCOSIS
     Route: 042
     Dates: start: 20070405, end: 20070505
  6. MODACIN [Suspect]
     Indication: SEPSIS
     Route: 042
     Dates: start: 20070507, end: 20070514
  7. OMEPRAL [Concomitant]
     Route: 042
     Dates: start: 20070509, end: 20070528
  8. OMEPRAL [Concomitant]
     Route: 042
     Dates: start: 20070529
  9. GAMIMUNE N 5% [Concomitant]
     Indication: IMMUNODEFICIENCY COMMON VARIABLE
     Route: 042
     Dates: end: 20070621
  10. PREDONINE [Concomitant]
     Indication: GRAFT VERSUS HOST DISEASE
     Route: 042
     Dates: start: 20070508, end: 20070511
  11. PREDONINE [Concomitant]
     Route: 042
     Dates: start: 20070512, end: 20070513
  12. HEPARIN SODIUM [Concomitant]
     Dates: end: 20070522
  13. HUMAN PLATELET CONCENTRATE [Concomitant]
     Dates: end: 20070626
  14. FUNGUARD [Concomitant]
     Route: 042
     Dates: start: 20070506, end: 20070507
  15. FUNGUARD [Concomitant]
     Route: 042
     Dates: start: 20070515, end: 20070515
  16. FUNGUARD [Concomitant]
     Route: 042
     Dates: start: 20070606, end: 20070625
  17. CONCENTRATED HUMAN RED BLOOD CELL [Concomitant]
     Dates: end: 20070626
  18. GRAN [Concomitant]
     Dates: start: 20070511, end: 20070516
  19. FINIBAX [Concomitant]
     Dates: start: 20070514, end: 20070515
  20. POTASSIUM CHLORIDE [Concomitant]
     Dates: start: 20070514, end: 20070529
  21. ZYVOX [Concomitant]
     Dates: start: 20070515, end: 20070517
  22. SOLU-MEDROL [Concomitant]
     Route: 017
     Dates: start: 20070517, end: 20070527
  23. DENOSINE [Concomitant]
     Dates: start: 20070516, end: 20070626
  24. MAXIPIME [Concomitant]
     Route: 017
     Dates: start: 20070517, end: 20070527
  25. VANCOMYCIN HYDROCHLORIDE [Concomitant]
     Dates: start: 20070518, end: 20070527
  26. BACTRAMIN [Concomitant]
     Dates: start: 20070517, end: 20070528
  27. PRODIF [Concomitant]
     Route: 017
     Dates: start: 20070617, end: 20070620

REACTIONS (2)
  - HEPATIC FUNCTION ABNORMAL [None]
  - RENAL IMPAIRMENT [None]
